FAERS Safety Report 4867808-X (Version None)
Quarter: 2005Q4

REPORT INFORMATION
  Report Type: 
  Country: None (occurrence: None)
  Receive Date: 20051227
  Receipt Date: 20051227
  Transmission Date: 20060501
  Serious: Yes (Other)
  Sender: FDA-Public Use
  Company Number: None

PATIENT
  Age: 52 Year
  Sex: Male
  Weight: 117.9352 kg

DRUGS (3)
  1. OXYCODONE HCL [Suspect]
     Indication: BACK PAIN
     Dosage: 40 MG 1 - 2 PO
     Route: 048
     Dates: start: 20050630
  2. OXYCODONE HCL [Suspect]
     Indication: INTERVERTEBRAL DISC DEGENERATION
     Dosage: 40 MG 1 - 2 PO
     Route: 048
     Dates: start: 20050630
  3. OXYCODONE HCL [Suspect]
     Indication: RADICULAR PAIN
     Dosage: 40 MG 1 - 2 PO
     Route: 048
     Dates: start: 20050630

REACTIONS (2)
  - HEADACHE [None]
  - SOMNOLENCE [None]
